FAERS Safety Report 15426843 (Version 1)
Quarter: 2018Q3

REPORT INFORMATION
  Report Type: Spontaneous
  Country: US (occurrence: US)
  Receive Date: 20180925
  Receipt Date: 20180925
  Transmission Date: 20181010
  Serious: No
  Sender: FDA-Public Use
  Company Number: US-INDIVIOR LIMITED-INDV-108084-2018

PATIENT
  Age: 31 Year
  Sex: Female

DRUGS (1)
  1. SUBOXONE [Suspect]
     Active Substance: BUPRENORPHINE HYDROCHLORIDE\NALOXONE HYDROCHLORIDE
     Indication: DRUG DEPENDENCE
     Dosage: 8 MG ONCE DAILY
     Route: 060
     Dates: start: 20180114

REACTIONS (8)
  - Feeling abnormal [Unknown]
  - Substance abuse [Unknown]
  - Drug withdrawal syndrome [Not Recovered/Not Resolved]
  - Pain in extremity [Unknown]
  - Hyperhidrosis [Unknown]
  - Asthenia [Unknown]
  - Rhinorrhoea [Unknown]
  - Insomnia [Unknown]

NARRATIVE: CASE EVENT DATE: 201801
